FAERS Safety Report 9965444 (Version 1)
Quarter: 2014Q1

REPORT INFORMATION
  Report Type: Report from Study
  Country: US (occurrence: US)
  Receive Date: 20140305
  Receipt Date: 20140305
  Transmission Date: 20141002
  Serious: No
  Sender: FDA-Public Use
  Company Number: US-ABBVIE-13P-163-1126500-00

PATIENT
  Sex: Female

DRUGS (6)
  1. HUMIRA [Suspect]
     Indication: COLITIS ULCERATIVE
     Dates: start: 20130627
  2. HUMIRA [Suspect]
     Dates: start: 20130712
  3. IMODIUM [Concomitant]
     Indication: DIARRHOEA
  4. ULTRAM [Concomitant]
     Indication: ABDOMINAL PAIN
     Dosage: AS NEEDED
  5. VICODIN [Concomitant]
     Indication: ABDOMINAL PAIN
     Dosage: AS NEEDED
  6. ALLEGRA [Concomitant]
     Indication: SEASONAL ALLERGY
     Dosage: DAILY

REACTIONS (5)
  - Defaecation urgency [Not Recovered/Not Resolved]
  - Abdominal pain [Not Recovered/Not Resolved]
  - Nausea [Not Recovered/Not Resolved]
  - Diarrhoea [Not Recovered/Not Resolved]
  - Abdominal pain [Not Recovered/Not Resolved]
